FAERS Safety Report 5430922-4 (Version None)
Quarter: 2007Q3

REPORT INFORMATION
  Report Type: 
  Country: None (occurrence: None)
  Receive Date: 20070828
  Receipt Date: 20070813
  Transmission Date: 20080115
  Serious: Yes (Other)
  Sender: FDA-Public Use
  Company Number: 2007RR-09288

PATIENT
  Age: 42 Year
  Sex: Male

DRUGS (1)
  1. CLARITHROMICINA RANBAXY ITALIA 250MG COMPRESSE RIVESTITE CON FILM(CLAR [Suspect]
     Indication: ACNE
     Dosage: 250 MG, BID,

REACTIONS (1)
  - THROMBOTIC THROMBOCYTOPENIC PURPURA [None]
